FAERS Safety Report 19118132 (Version 1)
Quarter: 2021Q2

REPORT INFORMATION
  Report Type: Spontaneous
  Country: US (occurrence: US)
  Receive Date: 20210410
  Receipt Date: 20210410
  Transmission Date: 20210717
  Serious: Yes (Life-Threatening, Hospitalization)
  Sender: FDA-Public Use
  Company Number: NVSC2021US079730

PATIENT
  Age: 68 Year
  Sex: Male
  Weight: 109.77 kg

DRUGS (1)
  1. ENTRESTO [Suspect]
     Active Substance: SACUBITRIL\VALSARTAN
     Indication: CARDIAC FAILURE CHRONIC
     Dosage: 50 MG, QD(24/26MG)
     Route: 048
     Dates: start: 20210330, end: 20210405

REACTIONS (6)
  - Tenderness [Recovering/Resolving]
  - Inappropriate schedule of product administration [Unknown]
  - Pancreatitis [Recovering/Resolving]
  - Abdominal pain [Recovering/Resolving]
  - Abdominal distension [Recovering/Resolving]
  - Underdose [Unknown]

NARRATIVE: CASE EVENT DATE: 20210401
